FAERS Safety Report 4496557-5 (Version None)
Quarter: 2004Q4

REPORT INFORMATION
  Report Type: 
  Country: None (occurrence: None)
  Receive Date: 20041109
  Receipt Date: 20041102
  Transmission Date: 20050328
  Serious: Yes (Hospitalization)
  Sender: FDA-Public Use
  Company Number: FR-JNJFOC-20040905265

PATIENT
  Age: 53 Year
  Sex: Female

DRUGS (5)
  1. RISPERDAL [Suspect]
     Route: 049
  2. TERCIAN [Suspect]
     Route: 049
  3. DEPAMIDE [Suspect]
     Route: 049
  4. LAROXYL [Interacting]
     Route: 049
  5. LAROXYL [Interacting]
     Route: 049

REACTIONS (2)
  - ANTIDEPRESSANT DRUG LEVEL INCREASED [None]
  - DRUG INTERACTION [None]
